FAERS Safety Report 19396895 (Version 2)
Quarter: 2021Q2

REPORT INFORMATION
  Report Type: Spontaneous
  Country: JP (occurrence: JP)
  Receive Date: 20210609
  Receipt Date: 20210625
  Transmission Date: 20210717
  Serious: Yes (Other)
  Sender: FDA-Public Use
  Company Number: JP-FERRINGPH-2021FE03522

PATIENT
  Age: 89 Year
  Sex: Male

DRUGS (1)
  1. MINIRINMELT [Suspect]
     Active Substance: DESMOPRESSIN ACETATE
     Indication: DIABETES INSIPIDUS
     Dosage: 60 UG
     Route: 065

REACTIONS (3)
  - Pulmonary oedema [Unknown]
  - Labelled drug-drug interaction issue [Recovered/Resolved]
  - Contraindicated product administered [Recovered/Resolved]
